FAERS Safety Report 23161694 (Version 7)
Quarter: 2024Q3

REPORT INFORMATION
  Report Type: Report from Study
  Country: DE (occurrence: DE)
  Receive Date: 20231108
  Receipt Date: 20240909
  Transmission Date: 20241016
  Serious: Yes (Other)
  Sender: AMGEN
  Company Number: DE-AMGEN-DEUNI2023166409

PATIENT
  Age: 60 Year
  Sex: Female
  Weight: 50.4 kg

DRUGS (45)
  1. TRASTUZUMAB [Suspect]
     Active Substance: TRASTUZUMAB
     Indication: Breast cancer
     Dosage: 399 MILLIGRAM, CYCLICAL
     Route: 065
     Dates: start: 20230817
  2. TRASTUZUMAB [Suspect]
     Active Substance: TRASTUZUMAB
     Dosage: 315 MILLIGRAM, CYCLICAL
     Route: 065
     Dates: start: 20230928
  3. TRASTUZUMAB [Suspect]
     Active Substance: TRASTUZUMAB
     Dosage: 315 MILLIGRAM, CYCLICAL
     Route: 065
     Dates: start: 20231019
  4. TRASTUZUMAB [Suspect]
     Active Substance: TRASTUZUMAB
     Dosage: 294 MILLIGRAM, CYCLICAL
     Route: 065
     Dates: start: 20231109
  5. TRASTUZUMAB [Suspect]
     Active Substance: TRASTUZUMAB
     Dosage: 399 MILLIGRAM, CYCLICAL
     Route: 065
     Dates: start: 20240709
  6. DOCETAXEL [Suspect]
     Active Substance: DOCETAXEL\DOCETAXEL ANHYDROUS
     Indication: Breast cancer
     Dosage: 118 MILLIGRAM/ LAST DOSE PRIOR EVENT: 116 MGFREQUENCY TEXT:PER CYCLE
     Route: 065
     Dates: start: 20230817, end: 20230817
  7. DOCETAXEL [Suspect]
     Active Substance: DOCETAXEL\DOCETAXEL ANHYDROUS
     Dosage: 118 MILLIGRAM, CYCLICAL
     Route: 065
     Dates: start: 20230907
  8. DOCETAXEL [Suspect]
     Active Substance: DOCETAXEL\DOCETAXEL ANHYDROUS
     Dosage: 118 MILLIGRAM, CYCLICAL
     Route: 065
     Dates: start: 20230928
  9. DOCETAXEL [Suspect]
     Active Substance: DOCETAXEL\DOCETAXEL ANHYDROUS
     Dosage: 118 MILLIGRAM, CYCLICAL
     Route: 065
     Dates: start: 20231019
  10. DOCETAXEL [Suspect]
     Active Substance: DOCETAXEL\DOCETAXEL ANHYDROUS
     Dosage: 116 MILLIGRAM, CYCLICAL
     Route: 065
     Dates: start: 20231109
  11. PERJETA [Suspect]
     Active Substance: PERTUZUMAB
     Indication: Breast cancer
     Dosage: 840 MILLIGRAM, CYCLICAL
     Route: 065
     Dates: start: 20230817
  12. PERJETA [Suspect]
     Active Substance: PERTUZUMAB
     Dosage: 840 MILLIGRAM, CYCLICAL
     Route: 065
     Dates: start: 20230820
  13. PERJETA [Suspect]
     Active Substance: PERTUZUMAB
     Dosage: 420 MILLIGRAM, CYCLICAL
     Route: 065
     Dates: start: 20230920
  14. PERJETA [Suspect]
     Active Substance: PERTUZUMAB
     Dosage: 420 MILLIGRAM, CYCLICAL
     Route: 065
     Dates: start: 20240820
  15. CARBOPLATIN [Suspect]
     Active Substance: CARBOPLATIN
     Indication: Breast cancer
     Dosage: 640 MILLIGRAM
     Route: 065
     Dates: start: 20230817, end: 20230817
  16. CARBOPLATIN [Suspect]
     Active Substance: CARBOPLATIN
     Dosage: 638 MILLIGRAM
     Route: 065
     Dates: start: 20230817
  17. CARBOPLATIN [Suspect]
     Active Substance: CARBOPLATIN
     Dosage: 690 MILLIGRAM
     Route: 065
     Dates: start: 20230907
  18. CARBOPLATIN [Suspect]
     Active Substance: CARBOPLATIN
     Dosage: 640 MILLIGRAM
     Route: 065
     Dates: start: 20230928
  19. CARBOPLATIN [Suspect]
     Active Substance: CARBOPLATIN
     Dosage: 640 MILLIGRAM
     Route: 065
     Dates: start: 20231019
  20. CARBOPLATIN [Suspect]
     Active Substance: CARBOPLATIN
     Dosage: 600 MILLIGRAM
     Route: 065
     Dates: start: 20231109
  21. NEULASTA [Concomitant]
     Active Substance: PEGFILGRASTIM
     Dosage: 6 MILLIGRAM, FREQUENCY TEXT:D1/CYCLE
     Route: 058
     Dates: start: 20230818, end: 20230929
  22. NEULASTA [Concomitant]
     Active Substance: PEGFILGRASTIM
     Dosage: 6 MILLIGRAM, QD
     Route: 058
     Dates: start: 20231110, end: 20231201
  23. DIMETHINDENE MALEATE [Concomitant]
     Active Substance: DIMETHINDENE MALEATE
     Dosage: 04 MILLIGRAM
     Route: 042
     Dates: start: 20230817, end: 20231130
  24. ENOXAPARIN SODIUM [Concomitant]
     Active Substance: ENOXAPARIN SODIUM
     Dosage: 400 INTERNATIONAL UNIT, QD
     Route: 058
     Dates: start: 20230817, end: 20230826
  25. AKYNZEO [Concomitant]
     Dosage: 300 MILLIGRAM, FREQUENCY TEXT:D1/PER CYCLE
     Route: 048
     Dates: start: 20230817, end: 20231130
  26. DEXAMETHASONE [Concomitant]
     Active Substance: DEXAMETHASONE
     Dosage: 8 MILLIGRAM, FREQUENCY TEXT:D1/CYCLE
     Route: 048
     Dates: start: 20230817, end: 20231130
  27. DEXAMETHASONE [Concomitant]
     Active Substance: DEXAMETHASONE
     Dosage: 8 MILLIGRAM, FREQUENCY TEXT:D3/CYCLE
     Route: 048
     Dates: start: 20230819, end: 20231202
  28. DEXAMETHASONE [Concomitant]
     Active Substance: DEXAMETHASONE
     Dosage: 16 MILLIGRAM, FREQUENCY TEXT:D0/CYCLE
     Route: 048
     Dates: start: 20230906, end: 20231129
  29. DEXAMETHASONE [Concomitant]
     Active Substance: DEXAMETHASONE
     Dosage: 8 MILLIGRAM, FREQUENCY TEXT:D1/CYCLE
     Route: 042
     Dates: start: 20230817, end: 20231130
  30. DEXAMETHASONE [Concomitant]
     Active Substance: DEXAMETHASONE
     Dosage: FREQUENCY TEXT:D2/CYCLE
     Route: 048
     Dates: start: 20230818, end: 20231201
  31. LOPERAMIDE [Concomitant]
     Active Substance: LOPERAMIDE
     Dosage: 2 MILLIGRAM
     Route: 048
     Dates: start: 20230821, end: 20230827
  32. LOPERAMIDE [Concomitant]
     Active Substance: LOPERAMIDE
     Dosage: 4 MILLIGRAM, AS NECESSARY
     Route: 048
     Dates: start: 20230910, end: 20230929
  33. LOPERAMIDE [Concomitant]
     Active Substance: LOPERAMIDE
     Dosage: 4 MILLIGRAM
     Route: 048
     Dates: start: 20231001
  34. VITAMIN D3 [Concomitant]
     Active Substance: CHOLECALCIFEROL
     Dosage: 2850 INTERNATIONAL UNIT, QWK
     Route: 048
     Dates: start: 20230908, end: 20240205
  35. VITAMIN D3 [Concomitant]
     Active Substance: CHOLECALCIFEROL
     Dosage: 1430 INTERNATIONAL UNIT, QD
     Route: 048
     Dates: start: 20240206, end: 20240506
  36. Hysan [Concomitant]
     Dosage: DOSE: 1 HUB, TID
     Route: 045
     Dates: start: 20230908
  37. Bepanthen [Concomitant]
     Dosage: DOSE: 1 CM
     Route: 045
     Dates: start: 20230908, end: 20240205
  38. MCP [Concomitant]
     Active Substance: METOCLOPRAMIDE HYDROCHLORIDE
     Dosage: 10 MILLIGRAM, QD
     Route: 048
     Dates: start: 20231007, end: 20231007
  39. MCP [Concomitant]
     Active Substance: METOCLOPRAMIDE HYDROCHLORIDE
     Dosage: 10 MILLIGRAM, AS NECESSARY
     Route: 048
     Dates: start: 20231116, end: 20231122
  40. ALLIUM CEPA [Concomitant]
     Active Substance: ONION
     Dosage: DOSE:5 GLOBULES, TID
     Route: 048
     Dates: start: 20230908, end: 20231214
  41. NYVEPRIA [Concomitant]
     Active Substance: PEGFILGRASTIM-APGF
     Dosage: 6 MILLIGRAM, FREQUENCY TEXT:D2/PER CYCLE
     Route: 058
     Dates: start: 20231020, end: 20231120
  42. Hametum [Concomitant]
     Dosage: UNK UNK, BID, 0.5 CM
     Route: 061
     Dates: start: 20231020
  43. MAGNESIUM 400 [Concomitant]
     Dosage: UNK
  44. AMARA-TROPFEN [Concomitant]
     Route: 048
  45. TIMO COMOD [Concomitant]
     Dosage: 1 GTT DROPS, BID
     Route: 061
     Dates: start: 20200630

REACTIONS (19)
  - Polyneuropathy [Recovering/Resolving]
  - Dyspepsia [Recovered/Resolved]
  - Asthenia [Recovered/Resolved]
  - Dysgeusia [Recovered/Resolved]
  - Oedema peripheral [Recovered/Resolved]
  - Epistaxis [Recovered/Resolved]
  - Alopecia [Recovered/Resolved]
  - Diarrhoea [Recovering/Resolving]
  - Decreased appetite [Recovered/Resolved]
  - Dry skin [Recovered/Resolved]
  - Flushing [Recovered/Resolved]
  - Rash [Recovered/Resolved]
  - Vomiting [Recovered/Resolved]
  - Nausea [Recovered/Resolved]
  - Anal haemorrhage [Recovered/Resolved]
  - Nail disorder [Recovered/Resolved]
  - Nail discolouration [Recovered/Resolved]
  - Pain in extremity [Recovered/Resolved]
  - Illness [Recovered/Resolved]

NARRATIVE: CASE EVENT DATE: 20230818
